FAERS Safety Report 5826222-0 (Version None)
Quarter: 2008Q3

REPORT INFORMATION
  Report Type: 
  Country: None (occurrence: None)
  Receive Date: 20080723
  Receipt Date: 20080703
  Transmission Date: 20090109
  Serious: Yes (Life-Threatening, Hospitalization, Disabling)
  Sender: FDA-Public Use
  Company Number: GBT040201219

PATIENT
  Age: 72 Year
  Sex: Male
  Weight: 71.5 kg

DRUGS (9)
  1. GEMCITABINE HCL [Suspect]
     Indication: BLADDER CANCER
     Dosage: 1720 MG, INTRAVENOUS
     Route: 042
     Dates: start: 20040204
  2. PACLITAXEL [Suspect]
     Indication: BLADDER CANCER
     Dosage: 138 MG
     Dates: start: 20040204
  3. CISPLATIN [Suspect]
     Indication: BLADDER CANCER
     Dosage: 120 MG
     Dates: start: 20040204
  4. ONDANSETRON HCL [Concomitant]
  5. CHLORPHENIRAMINE MALEATE [Concomitant]
  6. DEXAMETHASONE TAB [Concomitant]
  7. METOCLOPRAMIDE [Concomitant]
  8. ASPIRIN [Concomitant]
  9. LANSOPRAZOLE [Concomitant]

REACTIONS (9)
  - BLINDNESS [None]
  - HAEMOGLOBIN DECREASED [None]
  - NEUTROPENIC SEPSIS [None]
  - RETINAL DISORDER [None]
  - RETINAL ISCHAEMIA [None]
  - RETINAL VEIN OCCLUSION [None]
  - THROMBOCYTHAEMIA [None]
  - VISION BLURRED [None]
  - WHITE BLOOD CELL COUNT DECREASED [None]
